FAERS Safety Report 4717927-3 (Version None)
Quarter: 2005Q3

REPORT INFORMATION
  Report Type: 
  Country: None (occurrence: None)
  Receive Date: 20050718
  Receipt Date: 20050207
  Transmission Date: 20060218
  Serious: No
  Sender: FDA-Public Use
  Company Number: 2005000296

PATIENT
  Age: 70 Year
  Sex: Male

DRUGS (1)
  1. TARCEVA [Suspect]
     Indication: METASTATIC NEOPLASM
     Dosage: 75 MG (QD), ORAL
     Route: 048
     Dates: end: 20050204

REACTIONS (1)
  - BLEPHARITIS [None]
